FAERS Safety Report 6725348-7 (Version None)
Quarter: 2010Q2

REPORT INFORMATION
  Report Type: 
  Country: None (occurrence: None)
  Receive Date: 20100514
  Receipt Date: 20100503
  Transmission Date: 20101027
  Serious: Yes (Hospitalization, Other)
  Sender: FDA-Public Use
  Company Number: US-BAYER-201011318NA

PATIENT
  Age: 30 Year
  Sex: Female

DRUGS (8)
  1. YASMIN [Suspect]
     Indication: CONTRACEPTION
     Route: 048
     Dates: start: 20061106, end: 20070121
  2. SPIRONOLACTONE [Concomitant]
     Indication: POLYCYSTIC OVARIES
     Dates: start: 20100101
  3. COUMADIN [Concomitant]
     Dates: start: 20070101, end: 20080101
  4. IBUPROFEN [Concomitant]
  5. GLUCOPHAGE XR [Concomitant]
     Indication: DIABETES MELLITUS
  6. ZOCOR [Concomitant]
     Indication: BLOOD CHOLESTEROL INCREASED
  7. ONE-A-DAY [Concomitant]
     Indication: SUPPLEMENTATION THERAPY
     Dates: start: 20060101
  8. HERBAL PRODUCTS [Concomitant]

REACTIONS (3)
  - CHEST PAIN [None]
  - DYSPNOEA [None]
  - PULMONARY EMBOLISM [None]
